FAERS Safety Report 6108683-5 (Version None)
Quarter: 2009Q1

REPORT INFORMATION
  Report Type: 
  Country: None (occurrence: None)
  Receive Date: 20090305
  Receipt Date: 20090219
  Transmission Date: 20090719
  Serious: Yes (Death, Other)
  Sender: FDA-Public Use
  Company Number: 2008001397

PATIENT
  Age: 66 Year
  Sex: Female
  Weight: 47.2 kg

DRUGS (10)
  1. ERLOTINIB                         (TABLET) (ERLOTINIB) [Suspect]
     Indication: LUNG ADENOCARCINOMA
     Dosage: (150 MG, QD), ORAL : (100 MG, QD), ORAL
     Route: 048
     Dates: start: 20080417, end: 20080426
  2. ERLOTINIB                         (TABLET) (ERLOTINIB) [Suspect]
     Indication: LUNG ADENOCARCINOMA
     Dosage: (150 MG, QD), ORAL : (100 MG, QD), ORAL
     Route: 048
     Dates: start: 20080426, end: 20080602
  3. LOXONIN            (LOXOPROFEN SODIUM) [Concomitant]
  4. GAMOFA            (FAMOTIDINE) [Concomitant]
  5. MAGMITT      (MAGNESIUM OXIDE) [Concomitant]
  6. MUCOSTA      (REBAMIPIDE) [Concomitant]
  7. OXYCONTIN [Concomitant]
  8. PAXIL [Concomitant]
  9. HALCION [Concomitant]
  10. PANTOSIN (PANTETHINE) [Concomitant]

REACTIONS (9)
  - DISSEMINATED INTRAVASCULAR COAGULATION [None]
  - GASTROINTESTINAL PERFORATION [None]
  - HAEMOPHILUS INFECTION [None]
  - INTERSTITIAL LUNG DISEASE [None]
  - MULTI-ORGAN FAILURE [None]
  - PNEUMOTHORAX [None]
  - SPUTUM CULTURE POSITIVE [None]
  - STAPHYLOCOCCAL INFECTION [None]
  - STOMATITIS [None]
